FAERS Safety Report 9481312 (Version 2)
Quarter: 2013Q3

REPORT INFORMATION
  Report Type: Spontaneous
  Country: US (occurrence: US)
  Receive Date: 20130828
  Receipt Date: 20130828
  Transmission Date: 20140515
  Serious: Yes (Other)
  Sender: FDA-Public Use
  Company Number: US-AMGEN-KDL097775

PATIENT
  Age: 58 Year
  Sex: Female

DRUGS (2)
  1. ENBREL [Suspect]
     Indication: RHEUMATOID ARTHRITIS
     Dosage: 50 MG, QWK
     Route: 058
     Dates: start: 20001101
  2. LEFLUNOMIDE [Concomitant]
     Dosage: 40 MG, QD
     Route: 048

REACTIONS (9)
  - Gastric ulcer [Unknown]
  - Depression [Unknown]
  - Spinal pain [Unknown]
  - Cataract [Unknown]
  - Sinusitis [Unknown]
  - Oropharyngeal pain [Unknown]
  - Hypersensitivity [Unknown]
  - Injection site reaction [Unknown]
  - Injection site bruising [Unknown]
